FAERS Safety Report 19764551 (Version 1)
Quarter: 2021Q3

REPORT INFORMATION
  Report Type: Report from Study
  Country: None (occurrence: FR)
  Receive Date: 20210831
  Receipt Date: 20210831
  Transmission Date: 20211014
  Serious: Yes (Hospitalization)
  Sender: FDA-Public Use
  Company Number: FR-ABBVIE-21K-056-4041888-00

PATIENT
  Age: 67 Year
  Sex: Male

DRUGS (3)
  1. HUMIRA [Suspect]
     Active Substance: ADALIMUMAB
     Dosage: WEEK 4
     Route: 058
     Dates: start: 202105, end: 2021
  2. HUMIRA [Suspect]
     Active Substance: ADALIMUMAB
     Indication: CROHN^S DISEASE
     Route: 058
     Dates: start: 20210428, end: 20210428
  3. HUMIRA [Suspect]
     Active Substance: ADALIMUMAB
     Dosage: WEEK 2
     Route: 058
     Dates: start: 202105, end: 202105

REACTIONS (5)
  - Inflammation [Unknown]
  - Abdominal distension [Unknown]
  - Obstruction [Not Recovered/Not Resolved]
  - Vomiting [Unknown]
  - Constipation [Unknown]

NARRATIVE: CASE EVENT DATE: 2021
